FAERS Safety Report 21054341 (Version 1)
Quarter: 2022Q3

REPORT INFORMATION
  Report Type: Spontaneous
  Country: US (occurrence: US)
  Receive Date: 20220707
  Receipt Date: 20220707
  Transmission Date: 20221026
  Serious: No
  Sender: FDA-Public Use
  Company Number: US-Blueprint Medicines Corporation-SP-US-2022-002098

PATIENT
  Age: 85 Year
  Sex: Male

DRUGS (3)
  1. AYVAKIT [Suspect]
     Active Substance: AVAPRITINIB
     Indication: Gastrointestinal stromal tumour
     Route: 048
     Dates: start: 20220215
  2. AYVAKIT [Suspect]
     Active Substance: AVAPRITINIB
     Route: 048
     Dates: start: 20220215
  3. AYVAKIT [Suspect]
     Active Substance: AVAPRITINIB
     Route: 048

REACTIONS (2)
  - Scrotal swelling [Not Recovered/Not Resolved]
  - Penis disorder [Not Recovered/Not Resolved]

NARRATIVE: CASE EVENT DATE: 20220627
